FAERS Safety Report 5125680-7 (Version None)
Quarter: 2006Q4

REPORT INFORMATION
  Report Type: 
  Country: None (occurrence: None)
  Receive Date: 20061006
  Receipt Date: 20060920
  Transmission Date: 20070319
  Serious: Yes (Hospitalization)
  Sender: FDA-Public Use
  Company Number: DSA_61184_2006

PATIENT
  Age: 11 Year
  Sex: Female
  Weight: 45.8133 kg

DRUGS (1)
  1. DIASTAT [Suspect]
     Indication: EPILEPSY
     Dosage: DF PRN RC
     Route: 054

REACTIONS (1)
  - INTESTINAL MASS [None]
